FAERS Safety Report 17552062 (Version 1)
Quarter: 2020Q1

REPORT INFORMATION
  Report Type: Spontaneous
  Country: US (occurrence: US)
  Receive Date: 20200317
  Receipt Date: 20200317
  Transmission Date: 20200409
  Serious: Yes (Hospitalization, Other)
  Sender: FDA-Public Use
  Company Number: US-SHIRE-US202009415

PATIENT

DRUGS (1)
  1. GATTEX [Suspect]
     Active Substance: TEDUGLUTIDE\WATER
     Indication: SHORT-BOWEL SYNDROME
     Dosage: 0.45 MILLILITER, 1X/DAY:QD
     Route: 065
     Dates: start: 20200128

REACTIONS (3)
  - Renal failure [Recovering/Resolving]
  - Vascular device infection [Recovering/Resolving]
  - Coma [Recovering/Resolving]
